FAERS Safety Report 13244703 (Version 1)
Quarter: 2017Q1

REPORT INFORMATION
  Report Type: Spontaneous
  Country: US (occurrence: US)
  Receive Date: 20170216
  Receipt Date: 20170216
  Transmission Date: 20170428
  Serious: No
  Sender: FDA-Public Use
  Company Number: US-JAZZ-2017-US-001444

PATIENT
  Sex: Female

DRUGS (21)
  1. PROCHLORPERAZINE. [Concomitant]
     Active Substance: PROCHLORPERAZINE
  2. REMERON [Concomitant]
     Active Substance: MIRTAZAPINE
  3. PROVIGIL [Concomitant]
     Active Substance: MODAFINIL
  4. SIMVASTATIN. [Concomitant]
     Active Substance: SIMVASTATIN
  5. XYREM [Suspect]
     Active Substance: SODIUM OXYBATE
     Dosage: 3G, BID
     Route: 048
     Dates: start: 2015
  6. LYRICA [Concomitant]
     Active Substance: PREGABALIN
  7. VITAMIN B COMPLEX                  /00003501/ [Concomitant]
     Active Substance: CALCIUM PANTOTHENATE\NIACINAMIDE\PYRIDOXINE HYDROCHLORIDE\RIBOFLAVIN\THIAMINE HYDROCHLORIDE
  8. DEXAMETHASONE. [Concomitant]
     Active Substance: DEXAMETHASONE
  9. XANAX [Concomitant]
     Active Substance: ALPRAZOLAM
  10. XYREM [Suspect]
     Active Substance: SODIUM OXYBATE
     Indication: NARCOLEPSY
     Dosage: 1.5G, BID
     Route: 048
     Dates: start: 201409, end: 2014
  11. ACYCLOVIR                          /00587301/ [Concomitant]
     Active Substance: ACYCLOVIR
  12. VITAMIN D                          /00107901/ [Concomitant]
     Active Substance: ERGOCALCIFEROL
  13. TRAMADOL. [Concomitant]
     Active Substance: TRAMADOL
  14. MELOXICAM. [Concomitant]
     Active Substance: MELOXICAM
  15. TORSEMIDE. [Concomitant]
     Active Substance: TORSEMIDE
  16. TRAMADOL HCL [Concomitant]
     Active Substance: TRAMADOL HYDROCHLORIDE
  17. ARMOUR THYROID [Concomitant]
     Active Substance: THYROID, PORCINE
  18. XYREM [Suspect]
     Active Substance: SODIUM OXYBATE
     Dosage: DOSE ADJUSTMENT
     Route: 048
     Dates: start: 2014, end: 2015
  19. CYMBALTA [Concomitant]
     Active Substance: DULOXETINE HYDROCHLORIDE
  20. MAALOX ANTACID [Concomitant]
     Active Substance: ALUMINUM HYDROXIDE\DIMETHICONE\MAGNESIUM HYDROXIDE
  21. NORCO [Concomitant]
     Active Substance: ACETAMINOPHEN\HYDROCODONE BITARTRATE

REACTIONS (1)
  - Malaise [Not Recovered/Not Resolved]
